FAERS Safety Report 4472035-4 (Version None)
Quarter: 2004Q3

REPORT INFORMATION
  Report Type: 
  Country: None (occurrence: None)
  Receive Date: 20040909
  Receipt Date: 20040604
  Transmission Date: 20050211
  Serious: Yes (Other)
  Sender: FDA-Public Use
  Company Number: F03200400057

PATIENT
  Age: 47 Year
  Sex: Male
  Weight: 78.2 kg

DRUGS (9)
  1. OXALIPLATIN-SOLUTION [Suspect]
     Indication: COLORECTAL CANCER METASTATIC
     Dosage: INTRAVENOUS NOS
     Route: 042
  2. PTK787/ZK 222584 VS. PLACEBO [Suspect]
     Indication: COLORECTAL CANCER METASTATIC
     Dosage: ORAL
     Route: 048
     Dates: start: 20040225, end: 20040311
  3. FLUOROURACIL [Concomitant]
  4. LEUCOVORIN [Concomitant]
  5. DOLASETRON [Concomitant]
  6. DEXAMETHASONE [Concomitant]
  7. MILK OF MAGNESIA TAB [Concomitant]
  8. PROCHLORPERAZINE EDISYLATE [Concomitant]
  9. SENNA [Concomitant]

REACTIONS (8)
  - CHEST PAIN [None]
  - COUGH [None]
  - DYSPNOEA [None]
  - NEUTROPENIA [None]
  - PHARYNGOLARYNGEAL PAIN [None]
  - PLEURITIC PAIN [None]
  - PULMONARY EMBOLISM [None]
  - PYREXIA [None]
